FAERS Safety Report 4739467-8 (Version None)
Quarter: 2005Q3

REPORT INFORMATION
  Report Type: 
  Country: None (occurrence: None)
  Receive Date: 20050810
  Receipt Date: 20050324
  Transmission Date: 20060218
  Serious: No
  Sender: FDA-Public Use
  Company Number: US-GLAXOSMITHKLINE-A0551151A

PATIENT
  Sex: Male

DRUGS (4)
  1. PAXIL [Suspect]
     Indication: DEPRESSION
     Dosage: 25MG PER DAY
     Route: 048
  2. PULMICORT [Concomitant]
  3. ZETIA [Concomitant]
  4. ANTIHYPERTENSIVE [Concomitant]

REACTIONS (2)
  - MICTURITION URGENCY [None]
  - URINARY RETENTION [None]
